FAERS Safety Report 10450328 (Version 3)
Quarter: 2014Q4

REPORT INFORMATION
  Report Type: Spontaneous
  Country: US (occurrence: US)
  Receive Date: 20140912
  Receipt Date: 20141006
  Transmission Date: 20150528
  Serious: Yes (Hospitalization, Other)
  Sender: FDA-Public Use
  Company Number: US-PFIZER INC-2014253510

PATIENT
  Age: 48 Year
  Sex: Male
  Weight: 94.79 kg

DRUGS (2)
  1. CHANTIX [Suspect]
     Active Substance: VARENICLINE TARTRATE
     Dosage: 0.5 MG, 1X/DAY
     Route: 048
     Dates: start: 2000
  2. WARFARIN [Concomitant]
     Active Substance: WARFARIN
     Indication: CARDIAC DISORDER
     Dosage: UNK

REACTIONS (5)
  - Chest pain [Unknown]
  - Suicidal ideation [Unknown]
  - Myocardial infarction [Unknown]
  - Abnormal dreams [Unknown]
  - Nightmare [Unknown]

NARRATIVE: CASE EVENT DATE: 2000
